FAERS Safety Report 6618499-9 (Version None)
Quarter: 2010Q1

REPORT INFORMATION
  Report Type: 
  Country: None (occurrence: None)
  Receive Date: 20100223
  Receipt Date: 20100107
  Transmission Date: 20100710
  Serious: No
  Sender: FDA-Public Use
  Company Number: 8054144

PATIENT
  Sex: Female
  Weight: 56.8 kg

DRUGS (10)
  1. CIMZIA [Suspect]
     Indication: CROHN'S DISEASE
     Dosage: 400 MG SUBCUTANEOUS
     Route: 058
     Dates: start: 20090610
  2. DOXEPIN HCL [Concomitant]
  3. PROTONIX [Concomitant]
  4. CLONAZEPAM [Concomitant]
  5. COZAAR [Concomitant]
  6. HYDROCHLOROTHIAZIDE [Concomitant]
  7. ENTOCORT EC [Concomitant]
  8. PREDNISONE [Concomitant]
  9. CLIMARA [Concomitant]
  10. VITAMIN D [Concomitant]

REACTIONS (2)
  - BLOOD PRESSURE INCREASED [None]
  - HEADACHE [None]
